FAERS Safety Report 5499265-7 (Version None)
Quarter: 2007Q4

REPORT INFORMATION
  Report Type: 
  Country: None (occurrence: None)
  Receive Date: 20071026
  Receipt Date: 20071024
  Transmission Date: 20080405
  Serious: Yes (Hospitalization, Other)
  Sender: FDA-Public Use
  Company Number: FR-JNJFOC-20071005696

PATIENT
  Age: 12 Year
  Sex: Male

DRUGS (2)
  1. RISPERDAL [Suspect]
     Indication: DRUG USE FOR UNKNOWN INDICATION
     Route: 048
  2. TERCIAN [Suspect]
     Indication: DRUG USE FOR UNKNOWN INDICATION
     Route: 048

REACTIONS (2)
  - BLOOD CREATINE PHOSPHOKINASE INCREASED [None]
  - MYOGLOBIN BLOOD INCREASED [None]
